FAERS Safety Report 9207079 (Version 1)
Quarter: 2013Q2

REPORT INFORMATION
  Report Type: Spontaneous
  Country: US (occurrence: US)
  Receive Date: 20130403
  Receipt Date: 20130403
  Transmission Date: 20140414
  Serious: No
  Sender: FDA-Public Use
  Company Number: US-009507513-1304USA000417

PATIENT
  Sex: Female

DRUGS (3)
  1. SAPHRIS [Suspect]
     Indication: BIPOLAR I DISORDER
     Dosage: 5 MG, ONCE DAILY
     Route: 048
  2. ADDERALL TABLETS [Concomitant]
  3. CITALOPRAM [Concomitant]

REACTIONS (1)
  - Feeling abnormal [Unknown]
